FAERS Safety Report 8597753-8 (Version None)
Quarter: 2012Q3

REPORT INFORMATION
  Report Type: 
  Country: None (occurrence: None)
  Receive Date: 20120816
  Receipt Date: 20120813
  Transmission Date: 20120928
  Serious: Yes (Death)
  Sender: FDA-Public Use
  Company Number: PHHY2012BR070274

PATIENT
  Sex: Female
  Weight: 60 kg

DRUGS (5)
  1. EXODUS [Concomitant]
     Indication: DEPRESSION
     Dosage: 1 DF (10 MG), DAILY
     Route: 048
  2. EXELON [Suspect]
     Indication: DEMENTIA ALZHEIMER'S TYPE
  3. CALCIUM W/VITAMINS NOS [Concomitant]
     Indication: CALCIUM DEFICIENCY
     Dosage: 1 DF, DAILY
     Route: 048
  4. ALENDRONATE SODIUM [Concomitant]
     Indication: BONE DECALCIFICATION
     Dosage: 1 DF, QW
     Route: 048
  5. EXELON [Suspect]
     Indication: DEMENTIA
     Dosage: 1 DF, EVERY 24 HOURS
     Route: 062

REACTIONS (2)
  - ACUTE MYOCARDIAL INFARCTION [None]
  - PULMONARY OEDEMA [None]
